FAERS Safety Report 5465297-8 (Version None)
Quarter: 2007Q3

REPORT INFORMATION
  Report Type: 
  Country: None (occurrence: None)
  Receive Date: 20070919
  Receipt Date: 20070919
  Transmission Date: 20080115
  Serious: Yes (Hospitalization, Other)
  Sender: FDA-Public Use
  Company Number: None

PATIENT
  Sex: Female
  Weight: 135.8523 kg

DRUGS (3)
  1. EQUETRO [Suspect]
     Indication: BIPOLAR DISORDER
     Dosage: 800 MG AT BED ORAL
     Route: 048
     Dates: start: 20070627
  2. LITHIUM 300MG [Suspect]
     Indication: BIPOLAR DISORDER
     Dosage: 1200 MG TOTAL ORAL
     Route: 048
     Dates: start: 20050601
  3. ALBUTEROL [Concomitant]

REACTIONS (1)
  - CHOLELITHIASIS [None]
